FAERS Safety Report 12508392 (Version 1)
Quarter: 2016Q2

REPORT INFORMATION
  Report Type: Spontaneous
  Country: US (occurrence: US)
  Receive Date: 20160629
  Receipt Date: 20160629
  Transmission Date: 20160815
  Serious: No
  Sender: FDA-Public Use
  Company Number: US-AMNEAL PHARMACEUTICALS-2016AMN00245

PATIENT
  Sex: Male
  Weight: 90.7 kg

DRUGS (4)
  1. CHOLESTEROL MEDICINE [Concomitant]
     Active Substance: UNSPECIFIED INGREDIENT
     Indication: BLOOD CHOLESTEROL
  2. HIGH BLOOD PRESSURE MEDICINE [Concomitant]
     Indication: BLOOD PRESSURE MEASUREMENT
  3. DICLOFENAC SODIUM. [Suspect]
     Active Substance: DICLOFENAC SODIUM
     Indication: PAIN
     Dosage: 1 %, 4X/DAY( 2 GRAMS, 4 TIMES A DAY)
     Route: 061
     Dates: start: 20160512
  4. HYDROCODONE [Concomitant]
     Active Substance: HYDROCODONE

REACTIONS (1)
  - Drug ineffective [Unknown]
